FAERS Safety Report 6271205-2 (Version None)
Quarter: 2009Q3

REPORT INFORMATION
  Report Type: 
  Country: None (occurrence: None)
  Receive Date: 20090717
  Receipt Date: 20090709
  Transmission Date: 20100115
  Serious: Yes (Hospitalization)
  Sender: FDA-Public Use
  Company Number: US-BIOGENIDEC-2009BI021593

PATIENT
  Age: 39 Year
  Sex: Female

DRUGS (2)
  1. AVONEX [Suspect]
     Indication: MULTIPLE SCLEROSIS
     Route: 030
     Dates: start: 20030725, end: 20050124
  2. AVONEX [Suspect]
     Route: 030
     Dates: start: 20060112

REACTIONS (3)
  - BLOOD GLUCOSE INCREASED [None]
  - OPTIC NEURITIS [None]
  - VISION BLURRED [None]
